FAERS Safety Report 11608318 (Version 1)
Quarter: 2015Q4

REPORT INFORMATION
  Report Type: Spontaneous
  Country: FR (occurrence: FR)
  Receive Date: 20151007
  Receipt Date: 20151007
  Transmission Date: 20160304
  Serious: Yes (Hospitalization, Other)
  Sender: FDA-Public Use
  Company Number: FR-BRISTOL-MYERS SQUIBB COMPANY-BMS-2015-066537

PATIENT
  Age: 92 Year
  Sex: Female

DRUGS (5)
  1. GENTAMICINE /00047101/ [Suspect]
     Active Substance: GENTAMICIN
     Indication: PSOAS ABSCESS
     Dosage: UNK
     Route: 065
     Dates: start: 20150806, end: 20150817
  2. DAPTOMYCINE [Suspect]
     Active Substance: DAPTOMYCIN
     Indication: PSOAS ABSCESS
     Dosage: UNK
     Route: 065
     Dates: start: 20150812
  3. VANCOMYCINE [Concomitant]
     Active Substance: VANCOMYCIN
     Indication: PSOAS ABSCESS
     Dosage: UNK
     Route: 065
     Dates: start: 20150806, end: 20150810
  4. ZYVOXID [Suspect]
     Active Substance: LINEZOLID
     Indication: PNEUMONIA ASPIRATION
     Dosage: UNK
     Route: 048
     Dates: start: 20150816
  5. AZACTAM [Suspect]
     Active Substance: AZTREONAM
     Indication: PNEUMONIA ASPIRATION
     Dosage: UNK
     Route: 065
     Dates: start: 20150816, end: 20150819

REACTIONS (3)
  - Cell death [Recovering/Resolving]
  - Renal failure [Recovering/Resolving]
  - Cholestasis [Recovering/Resolving]

NARRATIVE: CASE EVENT DATE: 20150819
